FAERS Safety Report 9251051 (Version 1)
Quarter: 2013Q1

REPORT INFORMATION
  Report Type: Spontaneous
  Country: US (occurrence: None)
  Receive Date: 20130305
  Receipt Date: 20130305
  Transmission Date: 20140127
  Serious: Yes (Other)
  Sender: FDA-Public Use
  Company Number: 163-21880-12100109

PATIENT
  Age: 79 Year
  Sex: Female

DRUGS (6)
  1. REVLIMID [Suspect]
     Indication: MYELODYSPLASTIC SYNDROME
     Dosage: 5 MG, 14 IN 14 D, PO
     Route: 048
     Dates: start: 20101005
  2. SENIOR (MULTIVITAMINS PLUS (MULTIVITAMINS) [Concomitant]
  3. VITAMIN C [Concomitant]
  4. CYANOCOBALAMIN (CYANOCOBALAMIN) [Concomitant]
  5. AZITHROMYCIN (AZITHROMYCIN) [Concomitant]
  6. LEVOTHYROXINE SODIUM (LEVOTHYROXINE SODIUM) [Concomitant]

REACTIONS (2)
  - Upper respiratory tract infection [None]
  - Nasopharyngitis [None]
